FAERS Safety Report 8159639 (Version 2)
Quarter: 2013Q1

REPORT INFORMATION
  Report Type: Spontaneous
  Country: US (occurrence: US)
  Receive Date: 20110928
  Receipt Date: 20130301
  Transmission Date: 20140127
  Serious: Yes (Hospitalization, Disabling)
  Sender: FDA-Public Use
  Company Number: US-BAYER-2011-088366

PATIENT
  Age: 38 Year
  Sex: Female
  Weight: 59.86 kg

DRUGS (22)
  1. YASMIN [Suspect]
     Dosage: UNK
     Dates: start: 2002, end: 2009
  2. OCELLA [Suspect]
     Dosage: UNK
     Dates: start: 2002, end: 2009
  3. PREDNISOLONE [Concomitant]
     Dosage: 20 MG, UNK
     Route: 048
     Dates: start: 20090804
  4. PROVIGIL [Concomitant]
     Dosage: 200 MG, UNK
     Route: 048
     Dates: start: 20090926
  5. ARMOUR THYROID [Concomitant]
     Dosage: 60 MG, UNK
     Route: 048
     Dates: start: 20090808, end: 20091009
  6. FLUCONAZOLE [Concomitant]
     Dosage: 150 MG, UNK
     Route: 048
     Dates: start: 20091013
  7. PROMETHAZINE HCL W/PHENYLEPH.HCL/CODE.PHOS. [Concomitant]
     Dosage: 25 MG, UNK
     Route: 048
     Dates: start: 20091013
  8. CLARINEX [DESLORATADINE] [Concomitant]
     Dosage: 5 MG, UNK
     Route: 048
     Dates: start: 20090811, end: 20091023
  9. GABAPENTIN [Concomitant]
     Dosage: 100 MG, UNK
     Route: 048
     Dates: start: 20090730, end: 20091029
  10. GABAPENTIN [Concomitant]
     Dosage: 300 MG, UNK
     Dates: start: 20090914, end: 20091102
  11. ROCEPHIN [Concomitant]
     Route: 048
  12. SINGULAIR [Concomitant]
     Dosage: 10 MG, UNK
     Route: 048
     Dates: start: 20090822, end: 20091105
  13. ZITHROMAX [Concomitant]
     Dosage: 500 MG, UNK
     Route: 048
     Dates: start: 20090820, end: 20091102
  14. MEPRON [Concomitant]
     Dosage: 750 MG, UNK
     Route: 048
     Dates: start: 20090804, end: 20090910
  15. LYRICA [Concomitant]
     Dosage: 75 MG, UNK
     Route: 048
     Dates: start: 20090820
  16. OXYCODONE HYDROCHLORIDE [Concomitant]
     Dosage: 15 MG, UNK
     Route: 048
     Dates: start: 20090831, end: 20091027
  17. PROAIR HFA [Concomitant]
     Dosage: 90 MCG/DL, UNK
     Dates: start: 20090803
  18. CLONAZEPAM [Concomitant]
     Dosage: 0.5 MG, UNK
     Route: 048
     Dates: start: 20090910, end: 20091109
  19. MAXALT MLT [Concomitant]
     Dosage: 10 MG, UNK
     Route: 048
     Dates: start: 20091102
  20. OXYCONTIN [Concomitant]
     Dosage: 10 MG, UNK
     Dates: start: 20090827, end: 20091027
  21. PANTOPRAZOLE [Concomitant]
     Dosage: 40 MG, UNK
     Route: 048
     Dates: start: 20091021
  22. VYVANSE [Concomitant]
     Dosage: 20 MG, UNK
     Route: 048
     Dates: start: 20091013

REACTIONS (7)
  - Pancreatitis [None]
  - Gallbladder disorder [Unknown]
  - Deformity [None]
  - Anxiety [None]
  - Anhedonia [None]
  - Injury [None]
  - Pain [None]
